FAERS Safety Report 9187942 (Version 1)
Quarter: 2013Q1

REPORT INFORMATION
  Report Type: Spontaneous
  Country: US (occurrence: US)
  Receive Date: 20130325
  Receipt Date: 20130325
  Transmission Date: 20140127
  Serious: No
  Sender: FDA-Public Use
  Company Number: US-MYLANLABS-2012S1019736

PATIENT
  Age: 33 Year
  Sex: Female

DRUGS (8)
  1. FENTANYL TRANSDERMAL SYSTEM [Suspect]
     Indication: CANCER PAIN
     Dosage: Q72H
     Route: 062
     Dates: start: 20120914
  2. GABAPENTIN [Concomitant]
  3. MOTRIN [Concomitant]
  4. AMBIEN [Concomitant]
     Route: 048
  5. DULCOLAX /00064401/ [Concomitant]
  6. PERCOCET [Concomitant]
     Indication: BREAKTHROUGH PAIN
     Dosage: QD AS NEEDED
     Route: 048
  7. CIPRO [Concomitant]
     Dosage: WILL FINISH ON 28-SEP-2012
     Dates: start: 20120829
  8. EMEND /01627301/ [Concomitant]
     Indication: NAUSEA
     Dosage: AFTER CHEMOTHERAPY ONLY

REACTIONS (4)
  - Drug ineffective [Not Recovered/Not Resolved]
  - Cancer pain [Not Recovered/Not Resolved]
  - Drug withdrawal syndrome [Not Recovered/Not Resolved]
  - Hot flush [Not Recovered/Not Resolved]
